FAERS Safety Report 17910587 (Version 2)
Quarter: 2020Q2

REPORT INFORMATION
  Report Type: Report from Study
  Country: US (occurrence: US)
  Receive Date: 20200618
  Receipt Date: 20200621
  Transmission Date: 20200714
  Serious: Yes (Other)
  Sender: FDA-Public Use
  Company Number: US-ROCHE-2621759

PATIENT
  Age: 42 Year
  Sex: Female
  Weight: 83.99 kg

DRUGS (1)
  1. OCREVUS [Suspect]
     Active Substance: OCRELIZUMAB
     Indication: RELAPSING-REMITTING MULTIPLE SCLEROSIS
     Dosage: INITIAL DOSE: 300 MG FOLLOWED BY 300 MG IV 2 WEEKS AFTER?DATE OF TREATMENT: 26/JUL/2018, 09/AUG/2018
     Route: 042

REACTIONS (1)
  - Urinary tract infection [Recovering/Resolving]

NARRATIVE: CASE EVENT DATE: 20200603
